APPROVED DRUG PRODUCT: VAZALORE
Active Ingredient: ASPIRIN
Strength: 81MG
Dosage Form/Route: CAPSULE;ORAL
Application: N203697 | Product #002
Applicant: PLX PHARMA INC
Approved: Feb 26, 2021 | RLD: Yes | RS: No | Type: OTC

PATENTS:
Patent 10786444 | Expires: Sep 29, 2032
Patent 10646431 | Expires: Sep 29, 2032